FAERS Safety Report 12949297 (Version 1)
Quarter: 2016Q4

REPORT INFORMATION
  Report Type: Spontaneous
  Country: US (occurrence: US)
  Receive Date: 20161117
  Receipt Date: 20161117
  Transmission Date: 20170207
  Serious: No
  Sender: FDA-Public Use
  Company Number: US-PFIZER INC-2016532675

PATIENT
  Age: 64 Year
  Sex: Female
  Weight: 40 kg

DRUGS (1)
  1. ADVIL PM [Suspect]
     Active Substance: DIPHENHYDRAMINE CITRATE\IBUPROFEN
     Indication: CHILLS
     Dosage: 2 DF, UNK
     Dates: start: 20161112, end: 20161112

REACTIONS (5)
  - Dysarthria [Recovered/Resolved]
  - Fatigue [Unknown]
  - Product use issue [Unknown]
  - Gait disturbance [Recovered/Resolved]
  - Lethargy [Unknown]

NARRATIVE: CASE EVENT DATE: 20161112
